FAERS Safety Report 8479802-0 (Version None)
Quarter: 2012Q2

REPORT INFORMATION
  Report Type: 
  Country: None (occurrence: None)
  Receive Date: 20120629
  Receipt Date: 20120620
  Transmission Date: 20120825
  Serious: Yes (Other)
  Sender: FDA-Public Use
  Company Number: US-ABBOTT-12P-163-0947755-00

PATIENT
  Sex: Male
  Weight: 74.91 kg

DRUGS (3)
  1. SYNTHROID [Suspect]
     Indication: AUTOIMMUNE THYROIDITIS
     Route: 048
  2. DIOVAN [Concomitant]
     Indication: PRODUCT USED FOR UNKNOWN INDICATION
  3. CRESTOR [Concomitant]
     Indication: PRODUCT USED FOR UNKNOWN INDICATION

REACTIONS (2)
  - VAGINAL HAEMORRHAGE [None]
  - COELIAC DISEASE [None]
